FAERS Safety Report 4947513-1 (Version None)
Quarter: 2006Q1

REPORT INFORMATION
  Report Type: 
  Country: None (occurrence: None)
  Receive Date: 20060314
  Receipt Date: 20060306
  Transmission Date: 20060701
  Serious: Yes (Other)
  Sender: FDA-Public Use
  Company Number: CA-2006-005248

PATIENT
  Age: 31 Year
  Sex: Female

DRUGS (1)
  1. MIRENA [Suspect]
     Indication: CONTRACEPTION
     Dosage: 0.02 MG, CONT, INTRA-UTERINE
     Route: 015
     Dates: start: 20060301, end: 20060302

REACTIONS (3)
  - TUBAL LIGATION [None]
  - UTERINE HAEMORRHAGE [None]
  - UTERINE PERFORATION [None]
